FAERS Safety Report 8915063 (Version 2)
Quarter: 2012Q4

REPORT INFORMATION
  Report Type: 
  Country: AU (occurrence: AU)
  Receive Date: 20121116
  Receipt Date: 20121127
  Transmission Date: 20130627
  Serious: Yes (Other)
  Sender: FDA-Public Use
  Company Number: AU-ALEXION-A201202168

PATIENT
  Age: 11 Year
  Sex: Female

DRUGS (7)
  1. SOLIRIS 300MG [Suspect]
     Indication: HAEMOLYTIC URAEMIC SYNDROME
     Dosage: 300 mg, UNK
     Dates: start: 20121103
  2. CEFTRIAXONE [Concomitant]
     Dosage: UNK
  3. AZITHROMYCIN [Concomitant]
     Dosage: UNK
  4. GENTAMICIN [Concomitant]
     Dosage: UNK, once
  5. METRONIDAZOLE [Concomitant]
     Dosage: UNK
  6. MEROPENEM [Concomitant]
     Dosage: UNK
  7. CEFTAZIDIME [Concomitant]
     Dosage: UNK

REACTIONS (4)
  - Intestinal perforation [Unknown]
  - General physical health deterioration [Not Recovered/Not Resolved]
  - Colostomy [Unknown]
  - Peritonitis [Unknown]
